FAERS Safety Report 9830157 (Version 1)
Quarter: 2014Q1

REPORT INFORMATION
  Report Type: Spontaneous
  Country: US (occurrence: US)
  Receive Date: 20140120
  Receipt Date: 20140120
  Transmission Date: 20141002
  Serious: No
  Sender: FDA-Public Use
  Company Number: US-009507513-1401USA008395

PATIENT
  Age: 14 Year
  Sex: Male

DRUGS (4)
  1. INTRONA [Suspect]
     Indication: CRANIOPHARYNGIOMA
     Dosage: 3 MICROGRAM PER KILOGRAM PER WEEK
     Route: 058
  2. INTRONA [Suspect]
     Dosage: 1.5 MICROGRAM PER KILOGRAM PER WEEK
     Route: 058
  3. ACETAMINOPHEN [Concomitant]
     Dosage: 15 MG/KG, ONCE; 30 MINUTES BEFORE FIRST DOSE
  4. ACETAMINOPHEN [Concomitant]
     Dosage: 15 MG/KG, EVERY 4-6 HOURS, PRN

REACTIONS (4)
  - Transaminases increased [Unknown]
  - Thrombocytopenia [Unknown]
  - Cachexia [Recovering/Resolving]
  - Off label use [Unknown]
